FAERS Safety Report 16997744 (Version 1)
Quarter: 2019Q4

REPORT INFORMATION
  Report Type: Spontaneous
  Country: GB (occurrence: GB)
  Receive Date: 20191106
  Receipt Date: 20191106
  Transmission Date: 20200122
  Serious: Yes (Disabling)
  Sender: FDA-Public Use
  Company Number: GB-TEVA-2019-GB-1131157

PATIENT
  Age: 68 Year
  Sex: Male
  Weight: 97 kg

DRUGS (16)
  1. BETAMETHASONE VALERATE. [Concomitant]
     Active Substance: BETAMETHASONE VALERATE
     Dosage: APPLY TWICE DAILY
     Dates: start: 20190703
  2. CARBOCISTEINE [Concomitant]
     Active Substance: CARBOCYSTEINE
     Dosage: USE AS DIRECTED
     Dates: start: 20190402
  3. SERETIDE [Concomitant]
     Active Substance: FLUTICASONE PROPIONATE\SALMETEROL XINAFOATE
     Dosage: 4DF
     Route: 055
     Dates: start: 20190402, end: 20190710
  4. FLUCLOXACILLIN [Concomitant]
     Active Substance: FLUCLOXACILLIN
     Dosage: 4 DF
     Dates: start: 20190709, end: 20190716
  5. DOXAZOSIN [Concomitant]
     Active Substance: DOXAZOSIN MESYLATE
     Dosage: 2DF
     Dates: start: 20190704
  6. OMEPRAZOLE. [Concomitant]
     Active Substance: OMEPRAZOLE
     Dosage: 2DF
     Dates: start: 20190402
  7. SPIRONOLACTONE. [Suspect]
     Active Substance: SPIRONOLACTONE
     Dosage: AS DIRECTED 25 MG
     Dates: start: 20190808, end: 20190819
  8. VENTOLIN [Concomitant]
     Active Substance: ALBUTEROL SULFATE
     Dosage: AS NEEDED
     Route: 055
     Dates: start: 20190402
  9. ACLIDINIUM [Concomitant]
     Active Substance: ACLIDINIUM BROMIDE
     Dosage: 2 DF
     Dates: start: 20190402, end: 20190710
  10. SPIRONOLACTONE. [Suspect]
     Active Substance: SPIRONOLACTONE
     Dates: start: 20190902
  11. TRIMBOW [Concomitant]
     Active Substance: BECLOMETHASONE DIPROPIONATE\FORMOTEROL FUMARATE\GLYCOPYRROLATE
     Dosage: 4 DF
     Route: 055
     Dates: start: 20190710
  12. QV CREAM [Concomitant]
     Dosage: USE AS DIRECTED
     Dates: start: 20190717, end: 20190718
  13. ALLOPURINOL. [Concomitant]
     Active Substance: ALLOPURINOL
     Dosage: 1DF
     Dates: start: 20190402
  14. HYDROCORTISONE. [Concomitant]
     Active Substance: HYDROCORTISONE
     Dosage: APPLY TWICE DAILY
     Dates: start: 20190915, end: 20190916
  15. LERCANIDIPINE HYDROCHLORIDE [Concomitant]
     Active Substance: LERCANIDIPINE HYDROCHLORIDE
     Dosage: IN THE MORNING,1 DF
     Dates: start: 20190405
  16. CANDESARTAN. [Concomitant]
     Active Substance: CANDESARTAN
     Dosage: 1 DF
     Dates: start: 20190402

REACTIONS (5)
  - Asthenia [Recovered/Resolved]
  - Decreased appetite [Unknown]
  - Fatigue [Recovered/Resolved]
  - Malaise [Unknown]
  - Dizziness [Unknown]

NARRATIVE: CASE EVENT DATE: 20190917
